FAERS Safety Report 9187289 (Version 2)
Quarter: 2013Q2

REPORT INFORMATION
  Report Type: Report from Study
  Country: BR (occurrence: BR)
  Receive Date: 20130325
  Receipt Date: 20130611
  Transmission Date: 20140414
  Serious: Yes (Death, Hospitalization, Other)
  Sender: FDA-Public Use
  Company Number: BR-ABBOTT-13P-020-1065814-00

PATIENT
  Age: 33 Year
  Sex: Female

DRUGS (3)
  1. HUMIRA [Suspect]
     Indication: CROHN^S DISEASE
     Dosage: WEEK 0
     Route: 058
     Dates: start: 20121008
  2. HUMIRA [Suspect]
     Dosage: WEEK 2
     Route: 058
  3. HUMIRA [Suspect]
     Route: 058
     Dates: start: 20121008

REACTIONS (9)
  - Brain death [Fatal]
  - Organ failure [Fatal]
  - Nervous system disorder [Fatal]
  - Gastrointestinal disorder [Unknown]
  - Mental disorder [Unknown]
  - Loss of consciousness [Not Recovered/Not Resolved]
  - Ischaemia [Unknown]
  - Epilepsy [Unknown]
  - Drug ineffective [Unknown]
